FAERS Safety Report 19091747 (Version 1)
Quarter: 2021Q2

REPORT INFORMATION
  Report Type: Spontaneous
  Country: US (occurrence: US)
  Receive Date: 20210402
  Receipt Date: 20210402
  Transmission Date: 20210717
  Serious: Yes (Hospitalization)
  Sender: FDA-Public Use
  Company Number: None

PATIENT
  Age: 60 Year
  Sex: Female

DRUGS (8)
  1. REBIF [Suspect]
     Active Substance: INTERFERON BETA-1A
     Indication: MULTIPLE SCLEROSIS
     Dosage: ?          OTHER FREQUENCY:3 TIMES PER WEEK;?
     Route: 058
     Dates: start: 20200901
  2. CENTRUM [Concomitant]
     Active Substance: VITAMINS
  3. LEVOTHYROX [Concomitant]
     Active Substance: LEVOTHYROXINE
  4. VIT D [Concomitant]
     Active Substance: VITAMIN D NOS
  5. DICLOFENAC [Concomitant]
     Active Substance: DICLOFENAC
  6. DULOXETINE. [Concomitant]
     Active Substance: DULOXETINE
  7. LOVASTAT [Concomitant]
  8. ATENOLOL. [Concomitant]
     Active Substance: ATENOLOL

REACTIONS (3)
  - Surgery [None]
  - Therapy interrupted [None]
  - Cough [None]

NARRATIVE: CASE EVENT DATE: 20210326
